FAERS Safety Report 10537550 (Version 1)
Quarter: 2014Q4

REPORT INFORMATION
  Report Type: Spontaneous
  Country: US (occurrence: None)
  Receive Date: 20141022
  Receipt Date: 20141022
  Transmission Date: 20150529
  Serious: No
  Sender: FDA-Public Use
  Company Number: None

PATIENT
  Age: 24 Year
  Sex: Female
  Weight: 58.97 kg

DRUGS (1)
  1. DEPO PROVERA (GENERIC) [Suspect]
     Active Substance: MEDROXYPROGESTERONE ACETATE
     Indication: CONTRACEPTION
     Dosage: EVERY 12 WEEKS
     Route: 030

REACTIONS (1)
  - Anovulatory cycle [None]

NARRATIVE: CASE EVENT DATE: 20141021
